FAERS Safety Report 12525949 (Version 2)
Quarter: 2016Q3

REPORT INFORMATION
  Report Type: Spontaneous
  Country: US (occurrence: US)
  Receive Date: 20160705
  Receipt Date: 20160713
  Transmission Date: 20161109
  Serious: No
  Sender: FDA-Public Use
  Company Number: US-TEVA-672747ACC

PATIENT
  Sex: Female
  Weight: 108.51 kg

DRUGS (2)
  1. MELOXICAM. [Concomitant]
     Active Substance: MELOXICAM
  2. PARAGARD T 380A [Suspect]
     Active Substance: COPPER
     Indication: CONTRACEPTION
     Route: 065
     Dates: end: 20160627

REACTIONS (4)
  - Device use issue [Unknown]
  - Vaginal haemorrhage [Unknown]
  - Complication associated with device [Unknown]
  - Device breakage [Not Recovered/Not Resolved]
